FAERS Safety Report 8640663 (Version 3)
Quarter: 2014Q2

REPORT INFORMATION
  Report Type: Spontaneous
  Country: US (occurrence: US)
  Receive Date: 20120628
  Receipt Date: 20140530
  Transmission Date: 20141212
  Serious: Yes (Hospitalization, Other)
  Sender: FDA-Public Use
  Company Number: US-BAYER-2012-062790

PATIENT
  Age: 23 Year
  Sex: Female
  Weight: 65.76 kg

DRUGS (15)
  1. YASMIN [Suspect]
     Indication: CONTRACEPTION
     Dosage: UNK
     Dates: start: 200707, end: 200710
  2. YASMIN [Suspect]
     Indication: PREMENSTRUAL SYNDROME
  3. YAZ [Suspect]
     Indication: CONTRACEPTION
     Dosage: UNK
     Dates: start: 200712, end: 20080207
  4. YAZ [Suspect]
     Indication: PREMENSTRUAL SYNDROME
     Dosage: UNK
     Dates: start: 200805, end: 2009
  5. MAXALT [Concomitant]
     Dosage: UNK
     Dates: start: 2006
  6. NEXIUM [Concomitant]
     Dosage: UNK
  7. AMBI [Concomitant]
     Dosage: UNK
  8. BENZONATATE [Concomitant]
     Dosage: UNK
  9. TUSSIONEX [Concomitant]
     Dosage: UNK
  10. CEFUROXIME AXETIL [Concomitant]
     Dosage: UNK
  11. SERTRALINE [Concomitant]
     Indication: ANXIETY
     Dosage: UNK
     Dates: start: 2007
  12. CLARITHROMYCIN [Concomitant]
     Dosage: UNK
  13. METHYLPREDNISOLON [Concomitant]
     Dosage: UNK
  14. FIORICET [Concomitant]
     Dosage: UNK
  15. XANAX [Concomitant]

REACTIONS (10)
  - Basal ganglia stroke [None]
  - Injury [None]
  - Pain [None]
  - Dizziness [None]
  - VIIth nerve paralysis [None]
  - Hypoaesthesia [None]
  - Anxiety [None]
  - Cerebral venous thrombosis [None]
  - Intracardiac thrombus [None]
  - Depression [None]
